FAERS Safety Report 9970453 (Version 1)
Quarter: 2014Q1

REPORT INFORMATION
  Report Type: Spontaneous
  Country: US (occurrence: None)
  Receive Date: 20140304
  Receipt Date: 20140304
  Transmission Date: 20141002
  Serious: Yes (Hospitalization)
  Sender: FDA-Public Use
  Company Number: 2014P1001550

PATIENT
  Age: 77 Year
  Sex: Female

DRUGS (1)
  1. VANCOMYCIN [Suspect]
     Indication: CELLULITIS

REACTIONS (4)
  - Oedema peripheral [None]
  - Bacteraemia [None]
  - Toxic epidermal necrolysis [None]
  - Linear IgA disease [None]
